FAERS Safety Report 7104723-5 (Version None)
Quarter: 2010Q4

REPORT INFORMATION
  Report Type: 
  Country: None (occurrence: None)
  Receive Date: 20101116
  Receipt Date: 20101104
  Transmission Date: 20110411
  Serious: Yes (Death)
  Sender: FDA-Public Use
  Company Number: US-SHIRE-SPV1-2010-01376

PATIENT
  Sex: Male
  Weight: 47.3 kg

DRUGS (3)
  1. ELAPRASE [Suspect]
     Indication: MUCOPOLYSACCHARIDOSIS II
     Dosage: 18 MG, 1X/WEEK
     Route: 041
     Dates: start: 20070613
  2. ACTONEL [Concomitant]
     Dosage: 35 MG, 1X/WEEK
     Route: 048
     Dates: start: 20081024
  3. CALCITROL                          /00508501/ [Concomitant]
     Indication: OSTEOPENIA
     Dosage: 250 MG, 1X/DAY:QD
     Dates: start: 20011124

REACTIONS (1)
  - DEATH [None]
